FAERS Safety Report 4638325-7 (Version None)
Quarter: 2005Q2

REPORT INFORMATION
  Report Type: 
  Country: None (occurrence: None)
  Receive Date: 20050418
  Receipt Date: 20050328
  Transmission Date: 20051028
  Serious: Yes (Hospitalization)
  Sender: FDA-Public Use
  Company Number: CM-MERCK-0504USA01271

PATIENT
  Age: 18 Year
  Sex: Male

DRUGS (1)
  1. STROMECTOL [Suspect]
     Route: 048
     Dates: start: 20050301

REACTIONS (5)
  - AGITATION [None]
  - APHASIA [None]
  - BACK PAIN [None]
  - HEADACHE [None]
  - URINARY INCONTINENCE [None]
